FAERS Safety Report 23402545 (Version 6)
Quarter: 2024Q3

REPORT INFORMATION
  Report Type: Report from Study
  Country: CN (occurrence: CN)
  Receive Date: 20240115
  Receipt Date: 20240808
  Transmission Date: 20241016
  Serious: Yes (Other)
  Sender: NOVARTIS
  Company Number: CN-002147023-NVSC2024CN007907

PATIENT
  Age: 58 Year
  Sex: Male

DRUGS (4)
  1. TAFINLAR [Suspect]
     Active Substance: DABRAFENIB MESYLATE
     Indication: BRAF V600E mutation positive
     Dosage: 150 DOSAGE FORM
     Route: 048
     Dates: start: 20230804, end: 20230903
  2. TAFINLAR [Suspect]
     Active Substance: DABRAFENIB MESYLATE
     Dosage: UNK
     Route: 048
     Dates: start: 20230904
  3. MEKINIST [Suspect]
     Active Substance: TRAMETINIB DIMETHYL SULFOXIDE
     Indication: BRAF V600E mutation positive
     Dosage: 2 DOSAGE FORM
     Route: 048
     Dates: start: 20230804, end: 20230903
  4. MEKINIST [Suspect]
     Active Substance: TRAMETINIB DIMETHYL SULFOXIDE
     Dosage: UNK
     Route: 065
     Dates: start: 20230904

REACTIONS (4)
  - Pyrexia [Recovered/Resolved]
  - Aspartate aminotransferase increased [Not Recovered/Not Resolved]
  - Blood creatine phosphokinase increased [Recovering/Resolving]
  - Hypokalaemia [Recovering/Resolving]

NARRATIVE: CASE EVENT DATE: 20230830
